FAERS Safety Report 10372129 (Version 2)
Quarter: 2014Q4

REPORT INFORMATION
  Report Type: Spontaneous
  Country: US (occurrence: US)
  Receive Date: 20140808
  Receipt Date: 20141002
  Transmission Date: 20150528
  Serious: Yes (Hospitalization, Other)
  Sender: FDA-Public Use
  Company Number: US-TEVA-500541USA

PATIENT
  Age: 27 Year
  Sex: Male
  Weight: 115.32 kg

DRUGS (5)
  1. THORAZINE [Concomitant]
     Active Substance: CHLORPROMAZINE
  2. OLANZAPINE. [Concomitant]
     Active Substance: OLANZAPINE
  3. CLOZAPINE. [Suspect]
     Active Substance: CLOZAPINE
     Indication: PRODUCT USED FOR UNKNOWN INDICATION
     Route: 065
  4. DEPAKOTE [Concomitant]
     Active Substance: DIVALPROEX SODIUM
  5. LITHIUM [Concomitant]
     Active Substance: LITHIUM CARBONATE

REACTIONS (10)
  - Investigation [Unknown]
  - Abdominal pain upper [Unknown]
  - Pancreatitis [Unknown]
  - Infection [Unknown]
  - Vomiting [Unknown]
  - Lipase increased [Unknown]
  - Neutrophil count increased [Unknown]
  - White blood cell count increased [Unknown]
  - Pyrexia [Unknown]
  - Nausea [Unknown]

NARRATIVE: CASE EVENT DATE: 20140711
